FAERS Safety Report 15946260 (Version 1)
Quarter: 2019Q1

REPORT INFORMATION
  Report Type: Spontaneous
  Country: BR (occurrence: BR)
  Receive Date: 20190212
  Receipt Date: 20190212
  Transmission Date: 20190417
  Serious: Yes (Other)
  Sender: FDA-Public Use
  Company Number: BR-SA-2019SA032216

PATIENT
  Sex: Female
  Weight: 46 kg

DRUGS (2)
  1. LANTUS [Suspect]
     Active Substance: INSULIN GLARGINE
     Indication: TYPE 1 DIABETES MELLITUS
     Dosage: 21 IU, QD
     Route: 058
     Dates: start: 2000
  2. NOVORAPID [Concomitant]
     Active Substance: INSULIN ASPART
     Indication: TYPE 1 DIABETES MELLITUS
     Dosage: 15 CARBOHYDRATES 1 IU OF INSULIN
     Route: 058

REACTIONS (3)
  - Feeling abnormal [Unknown]
  - Exposure during pregnancy [Unknown]
  - Haemorrhage [Unknown]
